FAERS Safety Report 10679221 (Version 1)
Quarter: 2014Q4

REPORT INFORMATION
  Report Type: Spontaneous
  Country: US (occurrence: None)
  Receive Date: 20141224
  Receipt Date: 20141224
  Transmission Date: 20150529
  Serious: Yes (Other)
  Sender: FDA-Public Use
  Company Number: None

PATIENT
  Age: 37 Year
  Sex: Female

DRUGS (10)
  1. OFLOXACIN. [Concomitant]
     Active Substance: OFLOXACIN
  2. NICOTENE TRANSDERMAL [Concomitant]
  3. DIVALPROEX SODIUM. [Concomitant]
     Active Substance: DIVALPROEX SODIUM
  4. OMEPRAZOLE. [Concomitant]
     Active Substance: OMEPRAZOLE
  5. IBUPROFEN. [Concomitant]
     Active Substance: IBUPROFEN
  6. FERROUS SULFATE??? [Concomitant]
  7. TRAZODONE [Concomitant]
     Active Substance: TRAZODONE HYDROCHLORIDE
  8. TECFIDERA [Suspect]
     Active Substance: DIMETHYL FUMARATE
     Indication: MULTIPLE SCLEROSIS
     Dosage: 1 CAPSULE, BID, ORAL
     Route: 048
     Dates: start: 20141212, end: 20141212
  9. PRIMIDONE. [Concomitant]
     Active Substance: PRIMIDONE
  10. SERTRALINE HC1 [Concomitant]

REACTIONS (2)
  - Accidental overdose [None]
  - No adverse event [None]

NARRATIVE: CASE EVENT DATE: 20141223
